FAERS Safety Report 5009129-0 (Version None)
Quarter: 2006Q2

REPORT INFORMATION
  Report Type: 
  Country: None (occurrence: None)
  Receive Date: 20060523
  Receipt Date: 20060518
  Transmission Date: 20061013
  Serious: Yes (Hospitalization)
  Sender: FDA-Public Use
  Company Number: IT-MERCK-0605ITA00023

PATIENT
  Age: 72 Year
  Sex: Female

DRUGS (4)
  1. PRIMAXIN [Suspect]
     Indication: STAPHYLOCOCCAL SEPSIS
     Route: 041
     Dates: start: 20060322, end: 20060322
  2. CIPROXIN [Suspect]
     Indication: STAPHYLOCOCCAL SEPSIS
     Route: 041
     Dates: start: 20060322, end: 20060322
  3. CEFOTAXIME SODIUM [Suspect]
     Indication: STAPHYLOCOCCAL SEPSIS
     Route: 051
     Dates: start: 20060322, end: 20060322
  4. ALLOPURINOL [Suspect]
     Route: 048
     Dates: start: 20060322, end: 20060328

REACTIONS (1)
  - ERYTHEMA [None]
